FAERS Safety Report 19836359 (Version 1)
Quarter: 2021Q3

REPORT INFORMATION
  Report Type: Spontaneous
  Country: US (occurrence: US)
  Receive Date: 20210915
  Receipt Date: 20210915
  Transmission Date: 20211014
  Serious: No
  Sender: FDA-Public Use
  Company Number: US-BIOHAVEN PHARMACEUTICALS-2021BHV00922

PATIENT
  Age: 43 Year
  Weight: 68.48 kg

DRUGS (2)
  1. NURTEC ODT [Suspect]
     Active Substance: RIMEGEPANT SULFATE
     Indication: MIGRAINE
     Dosage: 75 MG, EVERY 48 HOURS (EVERY OTHER DAY)
     Route: 048
     Dates: start: 20210724, end: 20210726
  2. AIMOVIG [Concomitant]
     Active Substance: ERENUMAB-AOOE
     Dosage: 140 MG, 1X/MONTH

REACTIONS (1)
  - Rash [Not Recovered/Not Resolved]

NARRATIVE: CASE EVENT DATE: 20210724
